FAERS Safety Report 12784354 (Version 1)
Quarter: 2016Q3

REPORT INFORMATION
  Report Type: Report from Study
  Country: DE (occurrence: DE)
  Receive Date: 20160927
  Receipt Date: 20160927
  Transmission Date: 20161109
  Serious: Yes (Hospitalization)
  Sender: FDA-Public Use
  Company Number: DE-BEH-2010022104

PATIENT
  Age: 75 Year
  Sex: Male
  Weight: 68 kg

DRUGS (8)
  1. EUPHYLONG [Concomitant]
     Active Substance: THEOPHYLLINE ANHYDROUS
  2. SPIRIVA [Concomitant]
     Active Substance: TIOTROPIUM BROMIDE MONOHYDRATE
  3. VIANI [Concomitant]
     Active Substance: FLUTICASONE PROPIONATE\SALMETEROL XINAFOATE
  4. PRIVIGEN [Suspect]
     Active Substance: HUMAN IMMUNOGLOBULIN G
     Indication: IMMUNODEFICIENCY
     Dosage: 10 G EVERY 4 WEEKS
     Route: 042
     Dates: start: 20100119, end: 20100119
  5. L-THYROXIN [Concomitant]
     Active Substance: LEVOTHYROXINE SODIUM
  6. ACC LONG [Concomitant]
  7. BISOPROLOL [Concomitant]
     Active Substance: BISOPROLOL
  8. TORASEMIDE [Concomitant]
     Active Substance: TORSEMIDE

REACTIONS (1)
  - Femoral neck fracture [Not Recovered/Not Resolved]

NARRATIVE: CASE EVENT DATE: 20100215
